FAERS Safety Report 12777474 (Version 1)
Quarter: 2016Q3

REPORT INFORMATION
  Report Type: Spontaneous
  Country: US (occurrence: US)
  Receive Date: 20160924
  Receipt Date: 20160924
  Transmission Date: 20161109
  Serious: No
  Sender: FDA-Public Use
  Company Number: US-TEVA-609399USA

PATIENT
  Age: 66 Year
  Sex: Female

DRUGS (1)
  1. CLONAZEPAM. [Suspect]
     Active Substance: CLONAZEPAM
     Route: 065

REACTIONS (6)
  - Hallucination, visual [Unknown]
  - Withdrawal syndrome [Unknown]
  - Tremor [Unknown]
  - Aphasia [Unknown]
  - Insomnia [Unknown]
  - Head banging [Unknown]
